FAERS Safety Report 10653711 (Version 3)
Quarter: 2014Q4

REPORT INFORMATION
  Report Type: Report from Study
  Country: FR (occurrence: FR)
  Receive Date: 20141216
  Receipt Date: 20141225
  Transmission Date: 20150529
  Serious: Yes (Hospitalization, Other)
  Sender: FDA-Public Use
  Company Number: FR-ROCHE-1476911

PATIENT
  Age: 67 Year
  Sex: Male
  Weight: 80 kg

DRUGS (8)
  1. RITUXIMAB [Suspect]
     Active Substance: RITUXIMAB
     Indication: THROMBOCYTOPENIA
     Dosage: DATE OF LAST DOSE PRIOR TO SAE: 25/JUL/2011
     Route: 042
     Dates: start: 20110704
  2. ROMIPLOSTIM [Concomitant]
     Active Substance: ROMIPLOSTIM
     Route: 065
     Dates: start: 20111031
  3. DEXAMETHASONE. [Concomitant]
     Active Substance: DEXAMETHASONE
     Route: 065
     Dates: start: 20110508, end: 20110618
  4. IMMUNOGLOBULIN IV [Concomitant]
     Active Substance: HUMAN IMMUNOGLOBULIN G
     Route: 065
     Dates: start: 20111031
  5. IMMUNOGLOBULIN IV [Concomitant]
     Active Substance: HUMAN IMMUNOGLOBULIN G
     Route: 065
     Dates: start: 20111031
  6. IMMUNOGLOBULIN IV [Concomitant]
     Active Substance: HUMAN IMMUNOGLOBULIN G
     Route: 042
     Dates: start: 20110518, end: 20110630
  7. IMUREL [Concomitant]
     Active Substance: AZATHIOPRINE SODIUM
     Route: 065
     Dates: end: 20121002
  8. ELTROMBOPAG [Concomitant]
     Active Substance: ELTROMBOPAG
     Route: 065
     Dates: start: 20120221, end: 20120418

REACTIONS (5)
  - Oedema peripheral [Recovering/Resolving]
  - Acute kidney injury [Recovered/Resolved]
  - Product use issue [Unknown]
  - Cardiac failure [Recovered/Resolved]
  - Skin infection [Recovering/Resolving]

NARRATIVE: CASE EVENT DATE: 20110903
